FAERS Safety Report 6389875-7 (Version None)
Quarter: 2009Q4

REPORT INFORMATION
  Report Type: 
  Country: None (occurrence: None)
  Receive Date: 20091006
  Receipt Date: 20090114
  Transmission Date: 20100525
  Serious: No
  Sender: FDA-Public Use
  Company Number: US-BRISTOL-MYERS SQUIBB COMPANY-14471445

PATIENT
  Age: 74 Year
  Sex: Male

DRUGS (1)
  1. AVAPRO [Suspect]
     Indication: HYPERTENSION
     Dosage: 1 QD TAKEN 1/2 TAB BID
     Dates: start: 20081216

REACTIONS (1)
  - BLOOD PRESSURE DECREASED [None]
